FAERS Safety Report 8623084 (Version 2)
Quarter: 2013Q4

REPORT INFORMATION
  Report Type: Report from Study
  Country: FR (occurrence: FR)
  Receive Date: 20120620
  Receipt Date: 20131008
  Transmission Date: 20140711
  Serious: Yes (Hospitalization)
  Sender: FDA-Public Use
  Company Number: FR-BIOGENIDEC-2012BI021217

PATIENT
  Age: 23 Year
  Sex: Female
  Weight: 73 kg

DRUGS (7)
  1. TYSABRI [Suspect]
     Indication: MULTIPLE SCLEROSIS
     Route: 042
     Dates: start: 20081024
  2. HUMALOG [Concomitant]
     Indication: DIABETES MELLITUS
     Route: 058
  3. LANTUS [Concomitant]
     Indication: DIABETES MELLITUS
     Route: 058
  4. MINESSE [Concomitant]
     Indication: CONTRACEPTION
     Route: 048
  5. OMEPRAZOL [Concomitant]
     Indication: ABDOMINAL PAIN UPPER
  6. LOXAPINE [Concomitant]
     Dates: start: 20110113
  7. VALIUM [Concomitant]
     Dates: start: 20110113

REACTIONS (1)
  - Suicide attempt [Recovered/Resolved]
